FAERS Safety Report 8097460-4 (Version None)
Quarter: 2012Q1

REPORT INFORMATION
  Report Type: 
  Country: None (occurrence: None)
  Receive Date: 20120128
  Receipt Date: 20110707
  Transmission Date: 20120608
  Serious: No
  Sender: FDA-Public Use
  Company Number: US-ABBOTT-11P-163-0837025-00

PATIENT
  Age: 53 Year
  Sex: Female

DRUGS (7)
  1. HUMIRA [Suspect]
     Indication: RHEUMATOID ARTHRITIS
     Dates: start: 20101201
  2. PREMARIN [Concomitant]
     Indication: PRODUCT USED FOR UNKNOWN INDICATION
  3. TENORMIN [Concomitant]
     Indication: SINUS TACHYCARDIA
  4. CELEBREX [Concomitant]
     Indication: ARTHRALGIA
  5. TOPAMAX [Concomitant]
     Indication: MIGRAINE
  6. LASIX [Concomitant]
     Indication: OEDEMA PERIPHERAL
  7. RELPAX [Concomitant]
     Indication: MIGRAINE

REACTIONS (1)
  - ALOPECIA [None]
